FAERS Safety Report 6397255-3 (Version None)
Quarter: 2009Q4

REPORT INFORMATION
  Report Type: 
  Country: None (occurrence: None)
  Receive Date: 20091012
  Receipt Date: 20091007
  Transmission Date: 20100525
  Serious: Yes (Hospitalization)
  Sender: FDA-Public Use
  Company Number: US-MERCK-0910USA00819

PATIENT
  Age: 65 Year
  Sex: Female

DRUGS (5)
  1. FOSAMAX PLUS D [Suspect]
     Indication: OSTEOPOROSIS
     Route: 048
  2. FOSAMAX [Suspect]
     Indication: OSTEOPOROSIS
     Route: 048
     Dates: start: 20060101
  3. VITAMIN D (UNSPECIFIED) [Concomitant]
     Route: 065
  4. COZAAR [Concomitant]
     Route: 065
  5. IMODIUM [Concomitant]
     Route: 065

REACTIONS (5)
  - CATARACT [None]
  - HEADACHE [None]
  - HYPOTHYROIDISM [None]
  - NODULE ON EXTREMITY [None]
  - VISUAL IMPAIRMENT [None]
